FAERS Safety Report 6772803-X (Version None)
Quarter: 2010Q2

REPORT INFORMATION
  Report Type: 
  Country: None (occurrence: None)
  Receive Date: 20100616
  Receipt Date: 20100609
  Transmission Date: 20101027
  Serious: Yes (Hospitalization)
  Sender: FDA-Public Use
  Company Number: DE-ABBOTT-09P-062-0500389-00

PATIENT
  Age: 79 Year
  Sex: Female

DRUGS (7)
  1. HUMIRA [Suspect]
     Indication: RHEUMATOID ARTHRITIS
     Dates: start: 20040201, end: 20040501
  2. ETANERCEPT [Suspect]
     Indication: RHEUMATOID ARTHRITIS
     Dates: start: 20020201, end: 20020401
  3. ETANERCEPT [Suspect]
     Dates: start: 20040501, end: 20070309
  4. ETANERCEPT [Suspect]
     Dates: start: 20020701, end: 20040201
  5. ETANERCEPT [Suspect]
     Dates: end: 20070301
  6. METHOTREXATE [Concomitant]
     Indication: RHEUMATOID ARTHRITIS
     Dates: start: 19990901, end: 20020401
  7. LEFLUNOMIDE [Concomitant]
     Indication: RHEUMATOID ARTHRITIS
     Dates: start: 20040801, end: 20050401

REACTIONS (1)
  - BREAST CANCER RECURRENT [None]
